FAERS Safety Report 11418736 (Version 5)
Quarter: 2016Q3

REPORT INFORMATION
  Report Type: Spontaneous
  Country: US (occurrence: US)
  Receive Date: 20150826
  Receipt Date: 20160915
  Transmission Date: 20161109
  Serious: Yes (Death, Hospitalization, Other)
  Sender: FDA-Public Use
  Company Number: US-PFIZER INC-2015270628

PATIENT
  Age: 43 Year
  Sex: Female

DRUGS (26)
  1. ALBUTEROL. [Concomitant]
     Active Substance: ALBUTEROL
     Dosage: UNK
  2. IBRANCE [Suspect]
     Active Substance: PALBOCICLIB
     Indication: BREAST CANCER STAGE IV
     Dosage: 100 MG, UNK
     Route: 048
     Dates: start: 20150430, end: 20150716
  3. IBRANCE [Suspect]
     Active Substance: PALBOCICLIB
     Dosage: 100 MG, CYCLIC(100 MG, CYCLIC (3 WEEKS ON/1WEEK OFF)
     Route: 048
     Dates: start: 20150321, end: 20150716
  4. LETROZOLE. [Concomitant]
     Active Substance: LETROZOLE
     Indication: BREAST CANCER STAGE IV
  5. DENOSUMAB [Concomitant]
     Active Substance: DENOSUMAB
     Dosage: 120 MG, MONTHLY
     Route: 058
  6. MORPHINE [Concomitant]
     Active Substance: MORPHINE
     Indication: BREAST CANCER METASTATIC
     Dosage: 15 MG, AS NEEDED (Q4H)
     Route: 048
  7. BENZONATATE. [Concomitant]
     Active Substance: BENZONATATE
     Dosage: 200 MG, 3X/DAY
     Route: 048
  8. MORPHINE ER [Concomitant]
     Active Substance: MORPHINE
     Indication: BREAST CANCER METASTATIC
     Dosage: 30 MG, 2X/DAY
     Route: 048
  9. OMEPRAZOLE. [Concomitant]
     Active Substance: OMEPRAZOLE
     Dosage: 20 MG, 1X/DAY
     Route: 048
  10. METHOTREXATE. [Concomitant]
     Active Substance: METHOTREXATE
     Dosage: UNK
  11. IBRANCE [Suspect]
     Active Substance: PALBOCICLIB
     Indication: BREAST CANCER METASTATIC
     Dosage: 125 MG, CYCLIC (ONCE DAILY WITH FOOD FOR 21CONSECUTIVE DAYS FOLLOWED BY 7 DAYS OFF )
     Route: 048
     Dates: start: 20150321
  12. BENZOATE CALCIUM [Concomitant]
     Dosage: UNK
  13. MORPHINE ER [Concomitant]
     Active Substance: MORPHINE
     Dosage: UNK
  14. NAPROXEN SODIUM. [Concomitant]
     Active Substance: NAPROXEN SODIUM
     Indication: PAIN
     Dosage: 220 MG, DAILY
     Route: 048
  15. NAPROSYN [Suspect]
     Active Substance: NAPROXEN
     Dosage: 2 DF, 2X/DAY
     Dates: end: 20150716
  16. TYLENOL EXTRA STRENGTH [Concomitant]
     Active Substance: ACETAMINOPHEN
     Dosage: 2 DF, 2X/DAY
     Dates: end: 20150716
  17. VITAMIN D [Concomitant]
     Active Substance: CHOLECALCIFEROL
     Dosage: 5000 IU, 1X/DAY
     Route: 048
  18. ONDANSETRON [Concomitant]
     Active Substance: ONDANSETRON
     Indication: NAUSEA
     Dosage: 8 MG, AS NEEDED(3X/DAY)
  19. CALCIUM [Concomitant]
     Active Substance: CALCIUM
     Dosage: 600 MG, 2X/DAY
     Route: 048
  20. LETROZOLE. [Concomitant]
     Active Substance: LETROZOLE
     Indication: BREAST CANCER METASTATIC
     Dosage: 2.5 MG, DAILY
     Route: 048
     Dates: start: 20150321, end: 20150716
  21. POLYETHYLENE GLYCOL [Concomitant]
     Active Substance: POLYETHYLENE GLYCOLS
     Dosage: 17 G, 2X/DAY
     Route: 048
  22. PROAIR HFA [Concomitant]
     Active Substance: ALBUTEROL SULFATE
     Dosage: 2 DF, AS NEEDED(2 DF, AS NEEDED (90 MCG/ACT INHALER2 PUFF INH Q4H PRN)
  23. GABAPENTIN. [Concomitant]
     Active Substance: GABAPENTIN
     Dosage: 100 MG, 3X/DAY
     Route: 048
  24. MELATONIN [Concomitant]
     Active Substance: MELATONIN
     Dosage: 10 MG, AS NEEDED(AT NIGHT)
     Route: 048
  25. BUDESONIDE W/FORMOTEROL FUMARATE [Concomitant]
     Active Substance: BUDESONIDE\FORMOTEROL FUMARATE
     Dosage: 2 DF, 2X/DAY(2 DF, 2X/DAY (BUDESONIDE: 80 MCG/FORMOTEROL: 405 MCG)(2 PUFF INH BID)
     Route: 055
  26. ORPHENADRINE CITRATE. [Concomitant]
     Active Substance: ORPHENADRINE CITRATE
     Dosage: 100 MG, 2X/DAY
     Route: 048

REACTIONS (10)
  - Acute hepatic failure [Fatal]
  - Disease progression [Fatal]
  - Breast cancer metastatic [Fatal]
  - Disseminated intravascular coagulation [Fatal]
  - Haemolytic anaemia [Unknown]
  - Thrombocytopenia [Fatal]
  - Haemolysis [Fatal]
  - Hepatitis [Fatal]
  - Condition aggravated [Unknown]
  - International normalised ratio increased [Unknown]

NARRATIVE: CASE EVENT DATE: 20150716
